FAERS Safety Report 5457147-0 (Version None)
Quarter: 2007Q3

REPORT INFORMATION
  Report Type: 
  Country: None (occurrence: None)
  Receive Date: 20070918
  Receipt Date: 20070202
  Transmission Date: 20080115
  Serious: No
  Sender: FDA-Public Use
  Company Number: US-ASTRAZENECA-2007UW00562

PATIENT
  Age: 36 Year
  Sex: Female
  Weight: 68.9 kg

DRUGS (3)
  1. SEROQUEL [Suspect]
     Indication: BIPOLAR DISORDER
     Route: 048
     Dates: start: 20061101
  2. SEROQUEL [Suspect]
     Route: 048
  3. FLONASE [Concomitant]

REACTIONS (3)
  - AKATHISIA [None]
  - NASAL CONGESTION [None]
  - WEIGHT INCREASED [None]
